FAERS Safety Report 4811378-9 (Version None)
Quarter: 2005Q4

REPORT INFORMATION
  Report Type: 
  Country: None (occurrence: None)
  Receive Date: 20051027
  Receipt Date: 20051017
  Transmission Date: 20060501
  Serious: Yes (Life-Threatening, Hospitalization, Disabling)
  Sender: FDA-Public Use
  Company Number: 2005PK01934

PATIENT
  Age: 10472 Day
  Sex: Male
  Weight: 38 kg

DRUGS (4)
  1. MERONEM [Suspect]
     Indication: PNEUMONIA
     Route: 042
     Dates: start: 20051009, end: 20051015
  2. CIPROFLOXACIN [Concomitant]
     Indication: PNEUMONIA
     Route: 042
     Dates: start: 20051009, end: 20051015
  3. CARBAMAZEPINE [Concomitant]
     Indication: EPILEPSY
     Route: 042
     Dates: start: 20051009, end: 20051018
  4. KEPPRA [Concomitant]
     Indication: EPILEPSY
     Route: 048
     Dates: start: 20051009, end: 20051018

REACTIONS (2)
  - POLYURIA [None]
  - RENAL SALT-WASTING SYNDROME [None]
